FAERS Safety Report 9655668 (Version 2)
Quarter: 2013Q4

REPORT INFORMATION
  Report Type: Spontaneous
  Country: US (occurrence: US)
  Receive Date: 20131030
  Receipt Date: 20131115
  Transmission Date: 20140711
  Serious: Yes (Hospitalization)
  Sender: FDA-Public Use
  Company Number: US-BIOGENIDEC-2013BI102943

PATIENT
  Age: 42 Year
  Sex: Female

DRUGS (11)
  1. AVONEX [Suspect]
     Indication: MULTIPLE SCLEROSIS
     Route: 030
     Dates: start: 201208, end: 201209
  2. AVONEX [Suspect]
     Indication: MULTIPLE SCLEROSIS
     Route: 030
     Dates: start: 201209
  3. ALLOPURINOL [Concomitant]
  4. AMMONIUM LACTATE [Concomitant]
     Route: 061
  5. ATENOLOL [Concomitant]
  6. VITAMIN D3 [Concomitant]
  7. GABAPENTIN [Concomitant]
  8. VICODIN [Concomitant]
  9. LANTUS [Concomitant]
     Route: 058
  10. KEPPRA [Concomitant]
  11. JANUVIA [Concomitant]

REACTIONS (8)
  - Pulmonary embolism [Unknown]
  - Deep vein thrombosis [Unknown]
  - Type 2 diabetes mellitus [Unknown]
  - Hypertension [Unknown]
  - Gout [Unknown]
  - Haemorrhagic anaemia [Unknown]
  - Pain in extremity [Not Recovered/Not Resolved]
  - Menorrhagia [Unknown]
